FAERS Safety Report 17066899 (Version 1)
Quarter: 2019Q4

REPORT INFORMATION
  Report Type: Report from Study
  Country: US (occurrence: US)
  Receive Date: 20191122
  Receipt Date: 20191122
  Transmission Date: 20200122
  Serious: Yes (Other)
  Sender: FDA-Public Use
  Company Number: US-GLAXOSMITHKLINE-US2019GSK206089

PATIENT
  Age: 33 Year
  Sex: Male

DRUGS (1)
  1. EPOPROSTENOL SODIUM. [Suspect]
     Active Substance: EPOPROSTENOL SODIUM
     Indication: PULMONARY ARTERIAL HYPERTENSION
     Dosage: UNK
     Route: 042

REACTIONS (11)
  - Respiratory distress [Unknown]
  - Hyperthyroidism [Recovered/Resolved]
  - Swelling [Unknown]
  - Goitre [Unknown]
  - Plethoric face [Unknown]
  - Dyspnoea [Unknown]
  - Orthopnoea [Unknown]
  - Basedow^s disease [Unknown]
  - Lymphadenopathy [Unknown]
  - Tachycardia [Unknown]
  - Dysphagia [Unknown]
